FAERS Safety Report 15897567 (Version 1)
Quarter: 2019Q1

REPORT INFORMATION
  Report Type: Spontaneous
  Country: SE (occurrence: SE)
  Receive Date: 20190131
  Receipt Date: 20190131
  Transmission Date: 20190417
  Serious: Yes (Hospitalization)
  Sender: FDA-Public Use
  Company Number: SE-ELI_LILLY_AND_COMPANY-SE201901011674

PATIENT
  Age: 32 Year
  Sex: Female

DRUGS (2)
  1. COCILLANA-ETYFIN [ETHYLMORPHINE HYDROCHLORIDE [Suspect]
     Active Substance: ETHYLMORPHINE HYDROCHLORIDE\HERBALS
     Indication: PRODUCT USED FOR UNKNOWN INDICATION
     Dosage: UNK UNK, UNKNOWN
     Route: 048
     Dates: start: 20180920, end: 20180920
  2. STRATTERA [Suspect]
     Active Substance: ATOMOXETINE HYDROCHLORIDE
     Indication: PRODUCT USED FOR UNKNOWN INDICATION
     Dosage: UNK UNK, UNKNOWN
     Route: 048
     Dates: start: 20180921, end: 20180921

REACTIONS (4)
  - Intentional self-injury [Unknown]
  - Intentional overdose [Unknown]
  - Suicidal ideation [Unknown]
  - Tremor [Unknown]

NARRATIVE: CASE EVENT DATE: 201809
